FAERS Safety Report 4933454-2 (Version None)
Quarter: 2006Q1

REPORT INFORMATION
  Report Type: 
  Country: None (occurrence: None)
  Receive Date: 20060106
  Receipt Date: 20050805
  Transmission Date: 20060701
  Serious: No
  Sender: FDA-Public Use
  Company Number: 200511583BWH

PATIENT
  Sex: Male

DRUGS (3)
  1. LEVITRA [Suspect]
     Dosage: 20 MG, TOTAL DAILY, ORAL
     Route: 048
  2. MACRO ANTIOXIDANT [Concomitant]
  3. VITAMINS [Concomitant]

REACTIONS (1)
  - DRUG INEFFECTIVE [None]
